FAERS Safety Report 21258448 (Version 2)
Quarter: 2022Q3

REPORT INFORMATION
  Report Type: Spontaneous
  Country: US (occurrence: US)
  Receive Date: 20220826
  Receipt Date: 20220908
  Transmission Date: 20221027
  Serious: Yes (Other)
  Sender: FDA-Public Use
  Company Number: US-SUNOVION-2022SUN002545

PATIENT
  Age: 14 Year
  Sex: Female

DRUGS (2)
  1. LATUDA [Suspect]
     Active Substance: LURASIDONE HYDROCHLORIDE
     Indication: Bipolar disorder
     Dosage: 40 MG
     Route: 048
     Dates: start: 20220524, end: 20220701
  2. SEROQUEL [Concomitant]
     Active Substance: QUETIAPINE FUMARATE
     Indication: Bipolar disorder
     Dosage: UNK
     Route: 065
     Dates: start: 20210914, end: 20220524

REACTIONS (3)
  - Suicidal ideation [Recovered/Resolved]
  - Intrusive thoughts [Recovered/Resolved]
  - Akathisia [Unknown]

NARRATIVE: CASE EVENT DATE: 20220601
